FAERS Safety Report 5077166-6 (Version None)
Quarter: 2006Q3

REPORT INFORMATION
  Report Type: 
  Country: None (occurrence: None)
  Receive Date: 20060810
  Receipt Date: 20051223
  Transmission Date: 20061208
  Serious: No
  Sender: FDA-Public Use
  Company Number: US-GLAXOSMITHKLINE-A0586927A

PATIENT
  Age: 53 Year
  Sex: Female

DRUGS (2)
  1. PAROXETINE HCL [Suspect]
     Indication: FATIGUE
     Dosage: 20MG PER DAY
     Route: 048
     Dates: start: 20000101, end: 20051101
  2. PAXIL CR [Suspect]
     Indication: FATIGUE
     Dosage: 25MG PER DAY
     Route: 048
     Dates: start: 20051101

REACTIONS (2)
  - DIARRHOEA [None]
  - SOMNOLENCE [None]
